FAERS Safety Report 7125203-7 (Version None)
Quarter: 2010Q4

REPORT INFORMATION
  Report Type: 
  Country: None (occurrence: None)
  Receive Date: 20101129
  Receipt Date: 20101123
  Transmission Date: 20110411
  Serious: Yes (Other)
  Sender: FDA-Public Use
  Company Number: FR-PFIZER INC-2010058259

PATIENT
  Sex: Female
  Weight: 60 kg

DRUGS (4)
  1. ALDACTAZINE [Suspect]
     Indication: BLOOD PRESSURE DECREASED
     Dosage: 0.5 DF, ALTERNATE DAY
     Route: 048
     Dates: start: 20040401
  2. LYRICA [Suspect]
  3. LYSANXIA [Concomitant]
  4. EFFERALGAN CODEINE [Concomitant]
     Indication: TINNITUS
     Dosage: 6 TABLETS PER DAY IN 3 INTAKES
     Route: 048
     Dates: start: 20010101

REACTIONS (2)
  - CONVULSION [None]
  - TINNITUS [None]
